FAERS Safety Report 5487092-6 (Version None)
Quarter: 2007Q4

REPORT INFORMATION
  Report Type: 
  Country: None (occurrence: None)
  Receive Date: 20071016
  Receipt Date: 20071011
  Transmission Date: 20080405
  Serious: Yes (Hospitalization)
  Sender: FDA-Public Use
  Company Number: US-SHR-US-2007-030694

PATIENT
  Age: 52 Year
  Sex: Female
  Weight: 54 kg

DRUGS (4)
  1. CLIMARA PRO [Suspect]
     Indication: HORMONE REPLACEMENT THERAPY
     Dosage: UNK MG/D, CONT
     Route: 062
     Dates: start: 20070602, end: 20070821
  2. LEVOXRY [Concomitant]
  3. SYNTHROID [Concomitant]
     Dosage: .5 A?G, 1X/DAY
     Route: 048
  4. FOSAMAX [Concomitant]
     Indication: OSTEOPOROSIS
     Dosage: UNK, 1X/DAY
     Route: 048

REACTIONS (4)
  - ANAEMIA [None]
  - METRORRHAGIA [None]
  - TACHYCARDIA [None]
  - VAGINAL HAEMORRHAGE [None]
